FAERS Safety Report 12889981 (Version 1)
Quarter: 2016Q4

REPORT INFORMATION
  Report Type: Spontaneous
  Country: FI (occurrence: FI)
  Receive Date: 20161027
  Receipt Date: 20161027
  Transmission Date: 20170207
  Serious: Yes (Hospitalization)
  Sender: FDA-Public Use
  Company Number: FI-SA-2016SA177932

PATIENT
  Age: 75 Year
  Sex: Female

DRUGS (16)
  1. TOUJEO [Suspect]
     Active Substance: INSULIN GLARGINE
     Indication: TYPE 2 DIABETES MELLITUS
     Dosage: DOSE:20 UNIT(S)
     Route: 058
     Dates: start: 2016
  2. SOLOSTAR [Concomitant]
     Active Substance: DEVICE
     Dates: start: 2016
  3. SIMVASTATIN. [Concomitant]
     Active Substance: SIMVASTATIN
     Route: 048
  4. NEXIUM [Concomitant]
     Active Substance: ESOMEPRAZOLE MAGNESIUM
     Route: 048
  5. LANTUS [Concomitant]
     Active Substance: INSULIN GLARGINE
     Dosage: DOSE:20 UNIT(S)
     Dates: end: 20160620
  6. MAREVAN FORTE [Concomitant]
     Active Substance: WARFARIN SODIUM
     Route: 048
  7. HIPEKSAL [Concomitant]
     Route: 048
  8. MINISUN [Concomitant]
     Route: 048
  9. LANTUS [Concomitant]
     Active Substance: INSULIN GLARGINE
     Dosage: DOSE:40 UNIT(S)
  10. METFORMIN [Concomitant]
     Active Substance: METFORMIN HYDROCHLORIDE
  11. KALISOL [Concomitant]
     Route: 048
  12. VAGIFEM [Concomitant]
     Active Substance: ESTRADIOL
     Dosage: 10 MIKROG TWICE PER WEEK IN THE EVENING
  13. FURESIS [Concomitant]
     Active Substance: FUROSEMIDE
     Dates: end: 20160222
  14. TOUJEO [Suspect]
     Active Substance: INSULIN GLARGINE
     Indication: TYPE 2 DIABETES MELLITUS
     Dosage: DOSE:26 UNIT(S)
     Route: 058
     Dates: start: 2016
  15. NOVORAPID [Concomitant]
     Active Substance: INSULIN ASPART
     Route: 058
  16. PRECOSA [Concomitant]
     Route: 048

REACTIONS (2)
  - Cystitis [Unknown]
  - Hypoglycaemia [Unknown]

NARRATIVE: CASE EVENT DATE: 2016
